FAERS Safety Report 4503991-3 (Version None)
Quarter: 2004Q4

REPORT INFORMATION
  Report Type: 
  Country: None (occurrence: None)
  Receive Date: 20041115
  Receipt Date: 20041028
  Transmission Date: 20050328
  Serious: Yes (Hospitalization, Other)
  Sender: FDA-Public Use
  Company Number: 2004S1003220

PATIENT
  Age: 67 Year
  Sex: Male
  Weight: 109.7705 kg

DRUGS (5)
  1. FUROSEMIDE [Suspect]
     Indication: BLOOD PRESSURE
     Dosage: 20 MG, QD, ORAL
     Route: 048
     Dates: start: 20020701
  2. FUROSEMIDE [Suspect]
     Indication: BLOOD PRESSURE
     Dosage: 40 MG THEN 80 MG QD, ORAL
     Route: 048
  3. FUROSEMIDE [Suspect]
     Indication: BLOOD PRESSURE
     Dosage: 80MG THEN 160MG QD, ORAL
     Route: 048
  4. METOPROLOL [Concomitant]
  5. INSULIN [Concomitant]

REACTIONS (19)
  - CARDIAC DISORDER [None]
  - CHRONIC OBSTRUCTIVE AIRWAYS DISEASE [None]
  - CYSTITIS [None]
  - DEHYDRATION [None]
  - DIALYSIS [None]
  - DRUG INEFFECTIVE [None]
  - DYSGEUSIA [None]
  - EMPHYSEMA [None]
  - ENDOCARDITIS [None]
  - FATIGUE [None]
  - FLUID RETENTION [None]
  - LIVER DISORDER [None]
  - LUNG DISORDER [None]
  - PNEUMONIA [None]
  - RENAL FAILURE [None]
  - SHOCK [None]
  - SLEEP APNOEA SYNDROME [None]
  - THIRST [None]
  - WEIGHT INCREASED [None]
